FAERS Safety Report 14631441 (Version 2)
Quarter: 2018Q3

REPORT INFORMATION
  Report Type: Spontaneous
  Country: RU (occurrence: RU)
  Receive Date: 20180313
  Receipt Date: 20180705
  Transmission Date: 20181010
  Serious: Yes (Hospitalization, Other)
  Sender: FDA-Public Use
  Company Number: RU-ASTRAZENECA-2018SE31315

PATIENT
  Age: 63 Year
  Sex: Female
  Weight: 77 kg

DRUGS (3)
  1. THROMBO ASS [Concomitant]
     Active Substance: ASPIRIN
  2. BISOPROLOL [Concomitant]
     Active Substance: BISOPROLOL
  3. BRILINTA [Suspect]
     Active Substance: TICAGRELOR
     Indication: MYOCARDIAL INFARCTION
     Route: 048
     Dates: start: 20171029

REACTIONS (4)
  - Myocardial infarction [Recovered/Resolved]
  - Increased tendency to bruise [Not Recovered/Not Resolved]
  - Vascular stent occlusion [Recovered/Resolved]
  - Blood cholesterol increased [Unknown]

NARRATIVE: CASE EVENT DATE: 201712
